FAERS Safety Report 9618007 (Version 3)
Quarter: 2014Q1

REPORT INFORMATION
  Report Type: Report from Study
  Country: HU (occurrence: HU)
  Receive Date: 20131011
  Receipt Date: 20140207
  Transmission Date: 20141002
  Serious: Yes (Hospitalization, Other)
  Sender: FDA-Public Use
  Company Number: HU-ROCHE-1286755

PATIENT
  Age: 57 Year
  Sex: Female
  Weight: 167.6 kg

DRUGS (7)
  1. OMALIZUMAB [Suspect]
     Indication: ASTHMA
     Dosage: LAST DOSE OF XOLAIR: 13/SEP/2013
     Route: 065
     Dates: start: 20130628
  2. FOSTER (BECLOMETASONE DIPROPIONATE/FORMOTEROL FUMARATE) [Concomitant]
     Route: 065
     Dates: start: 2011
  3. THEOSPIREX [Concomitant]
     Route: 065
     Dates: start: 2011
  4. MONTELUKAST [Concomitant]
     Route: 065
     Dates: start: 2011
  5. SPIRIVA [Concomitant]
     Route: 065
     Dates: start: 2009
  6. VENTOLIN [Concomitant]
     Route: 065
     Dates: start: 2011
  7. OXYGEN [Concomitant]
     Route: 065
     Dates: start: 2009

REACTIONS (19)
  - Drug hypersensitivity [Recovered/Resolved]
  - Anaphylactic reaction [Unknown]
  - Malaise [Recovered/Resolved]
  - Blood pressure increased [Recovered/Resolved]
  - Blood glucose increased [Unknown]
  - Blood urea increased [Unknown]
  - Blood lactate dehydrogenase increased [Unknown]
  - Blood cholesterol increased [Unknown]
  - Low density lipoprotein increased [Unknown]
  - Blood albumin increased [Unknown]
  - Mean cell volume decreased [Unknown]
  - Tri-iodothyronine increased [Unknown]
  - Headache [Not Recovered/Not Resolved]
  - Arthralgia [Recovered/Resolved]
  - Wheezing [Unknown]
  - Asthma [Unknown]
  - Hypersensitivity [Unknown]
  - Protein urine present [Unknown]
  - Albumin urine absent [Unknown]
